FAERS Safety Report 19217800 (Version 1)
Quarter: 2021Q2

REPORT INFORMATION
  Report Type: Spontaneous
  Country: JP (occurrence: JP)
  Receive Date: 20210505
  Receipt Date: 20210505
  Transmission Date: 20210717
  Serious: Yes (Hospitalization)
  Sender: FDA-Public Use
  Company Number: JP-TEVA-2021-JP-1907005

PATIENT
  Age: 71 Year
  Sex: Male

DRUGS (10)
  1. FAMOTIDINE. [Concomitant]
     Active Substance: FAMOTIDINE
     Indication: ANAPHYLACTIC SHOCK
     Route: 042
     Dates: start: 2020
  2. ADRENALINE [Interacting]
     Active Substance: EPINEPHRINE
     Indication: ANAPHYLACTIC SHOCK
     Dosage: 0.3MG INJECTION TWICE FOR THE SHOCK; THE THIRD IM EPINEPHRINE 0.3MG;
     Route: 030
     Dates: start: 2020
  3. AMLODIPINE [Concomitant]
     Active Substance: AMLODIPINE BESYLATE
     Indication: HYPERTENSION
  4. DEXCHLORPHENIRAMINE MALEATE. [Concomitant]
     Active Substance: DEXCHLORPHENIRAMINE MALEATE
     Indication: ANAPHYLACTIC SHOCK
     Route: 042
     Dates: start: 2020
  5. AMLODIPINE [Concomitant]
     Active Substance: AMLODIPINE BESYLATE
     Indication: AORTIC DISSECTION
     Route: 048
     Dates: start: 2020
  6. BISOPROLOL [Suspect]
     Active Substance: BISOPROLOL
     Indication: HYPERTENSION
     Route: 048
     Dates: start: 2020
  7. BISOPROLOL [Interacting]
     Active Substance: BISOPROLOL
     Indication: AORTIC DISSECTION
  8. HYDROCORTISONE?SODIUM?SUCCINATE [Concomitant]
     Indication: ANAPHYLACTIC SHOCK
     Route: 042
     Dates: start: 2020
  9. AZILSARTAN [Concomitant]
     Active Substance: AZILSARTAN KAMEDOXOMIL
     Indication: HYPERTENSION
     Route: 048
     Dates: start: 2020
  10. AZILSARTAN [Concomitant]
     Active Substance: AZILSARTAN KAMEDOXOMIL
     Indication: AORTIC DISSECTION

REACTIONS (4)
  - Kounis syndrome [Unknown]
  - Drug resistance [Unknown]
  - Drug interaction [Unknown]
  - Acute coronary syndrome [Unknown]

NARRATIVE: CASE EVENT DATE: 2020
